FAERS Safety Report 23054836 (Version 1)
Quarter: 2023Q4

REPORT INFORMATION
  Report Type: Spontaneous
  Country: US (occurrence: None)
  Receive Date: 20231010
  Receipt Date: 20231010
  Transmission Date: 20240109
  Serious: Yes (unspecified)
  Sender: FDA-Public Use
  Company Number: None

PATIENT
  Age: 17 Year
  Sex: Female
  Weight: 50.5 kg

DRUGS (1)
  1. STELARA [Suspect]
     Active Substance: USTEKINUMAB
     Dosage: OTHER FREQUENCY : ONCE;?
     Route: 042
     Dates: start: 20230418, end: 20230418

REACTIONS (8)
  - Dyspnoea [None]
  - Dizziness [None]
  - Rash [None]
  - Drug hypersensitivity [None]
  - Therapy cessation [None]
  - Product use issue [None]
  - Prescribed overdose [None]
  - Infusion related reaction [None]

NARRATIVE: CASE EVENT DATE: 20230418
